FAERS Safety Report 7537383-X (Version None)
Quarter: 2011Q2

REPORT INFORMATION
  Report Type: 
  Country: None (occurrence: None)
  Receive Date: 20110609
  Receipt Date: 20110527
  Transmission Date: 20111010
  Serious: Yes (Hospitalization, Other)
  Sender: FDA-Public Use
  Company Number: JP-CELGENEUS-087-21880-10112248

PATIENT
  Sex: Female

DRUGS (31)
  1. REVLIMID [Suspect]
     Dosage: 25 MILLIGRAM
     Route: 048
     Dates: start: 20101217, end: 20101227
  2. URSO 250 [Concomitant]
     Indication: DISEASE COMPLICATION
     Dosage: 600 MILLIGRAM
     Route: 048
     Dates: start: 20101012, end: 20101025
  3. SULFAMETHOXAZOLE [Concomitant]
     Indication: PROPHYLAXIS
     Dosage: 1 TABLET
     Route: 048
     Dates: start: 20101012
  4. REVLIMID [Suspect]
     Dosage: 25 MILLIGRAM
     Route: 048
     Dates: start: 20101109, end: 20101112
  5. NEO MINOPHAGEN [Concomitant]
     Indication: PROPHYLAXIS
     Dosage: 20 MILLILITER
     Route: 041
     Dates: start: 20101118, end: 20101118
  6. NEO MINOPHAGEN [Concomitant]
     Dosage: 20 MILLILITER
     Route: 041
     Dates: start: 20101210, end: 20101210
  7. NEO MINOPHAGEN [Concomitant]
     Dosage: 20 MILLILITER
     Route: 041
     Dates: start: 20101213, end: 20101213
  8. NEO MINOPHAGEN [Concomitant]
     Dosage: 20 MILLILITER
     Route: 041
     Dates: start: 20101206, end: 20101206
  9. DEXAMETHASONE [Suspect]
     Dosage: 40 MILLIGRAM
     Route: 048
     Dates: start: 20101026, end: 20101029
  10. RABEPRAZOLE SODIUM [Concomitant]
     Indication: PROPHYLAXIS
     Dosage: 10 MILLIGRAM
     Route: 048
     Dates: start: 20101012
  11. DIAZEPAM [Concomitant]
     Dosage: 1 MILLIGRAM
     Route: 048
     Dates: start: 20101019, end: 20101026
  12. OXYCONTIN [Concomitant]
     Dosage: 10 MILLIGRAM
     Route: 048
     Dates: start: 20101006
  13. NEO MINOPHAGEN [Concomitant]
     Dosage: 20 MILLILITER
     Route: 041
     Dates: start: 20101223, end: 20101223
  14. DEXAMETHASONE [Suspect]
     Indication: MULTIPLE MYELOMA
     Dosage: 40 MILLIGRAM
     Route: 048
     Dates: start: 20101012, end: 20101015
  15. CEFAZOLIN SODIUM [Concomitant]
     Indication: DISEASE COMPLICATION
     Dosage: 3 GRAM
     Route: 048
     Dates: start: 20101012
  16. NEO MINOPHAGEN [Concomitant]
     Dosage: 20 MILLILITER
     Route: 041
     Dates: start: 20101227, end: 20101227
  17. NEO MINOPHAGEN [Concomitant]
     Dosage: 20 MILLILITER
     Route: 041
     Dates: start: 20101229, end: 20101229
  18. NEO MINOPHAGEN [Concomitant]
     Dosage: 20 MILLILITER
     Route: 041
     Dates: start: 20101231, end: 20101231
  19. DEXAMETHASONE [Suspect]
     Dosage: 40 MILLIGRAM
     Route: 048
     Dates: start: 20101207, end: 20101226
  20. PROCHLORPERAZINE [Concomitant]
     Indication: DISEASE COMPLICATION
     Dosage: 15 MILLIGRAM
     Route: 048
     Dates: start: 20101012
  21. REVLIMID [Suspect]
     Dosage: 25 MILLIGRAM
     Route: 048
     Dates: start: 20101120, end: 20101127
  22. DEXAMETHASONE [Suspect]
     Dosage: 40 MILLIGRAM
     Route: 048
     Dates: start: 20101109, end: 20101128
  23. CEREKINON [Concomitant]
     Dosage: 300 MILLIGRAM
     Route: 048
     Dates: start: 20101126, end: 20101202
  24. MAXIPIME [Concomitant]
     Route: 065
     Dates: start: 20101230, end: 20110104
  25. GOSHA-JINKI-GAN [Concomitant]
     Dosage: 3 PACKETS
     Route: 048
     Dates: start: 20101012
  26. ASPIRIN [Concomitant]
     Indication: PROPHYLAXIS
     Dosage: 100 MILLIGRAM
     Route: 048
     Dates: start: 20101012, end: 20101021
  27. NEO MINOPHAGEN [Concomitant]
     Dosage: 20 MILLILITER
     Route: 041
     Dates: start: 20101216, end: 20101216
  28. NEO MINOPHAGEN [Concomitant]
     Dosage: 20 MILLILITER
     Route: 041
     Dates: start: 20101224, end: 20101224
  29. NEO MINOPHAGEN [Concomitant]
     Dosage: 20 MILLILITER
     Route: 041
     Dates: start: 20110107, end: 20110107
  30. REVLIMID [Suspect]
     Indication: MULTIPLE MYELOMA
     Dosage: 25 MILLIGRAM
     Route: 048
     Dates: start: 20101012, end: 20101101
  31. DEXAMETHASONE [Suspect]
     Dosage: 40 MILLIGRAM
     Route: 048
     Dates: start: 20101019, end: 20101022

REACTIONS (6)
  - PLATELET COUNT DECREASED [None]
  - THROMBOCYTOPENIA [None]
  - UPPER RESPIRATORY TRACT INFLAMMATION [None]
  - NEUTROPENIA [None]
  - NEUTROPHIL COUNT DECREASED [None]
  - RASH [None]
